FAERS Safety Report 16277778 (Version 2)
Quarter: 2019Q4

REPORT INFORMATION
  Report Type: Report from Study
  Country: US (occurrence: US)
  Receive Date: 20190506
  Receipt Date: 20191202
  Transmission Date: 20200122
  Serious: Yes (Other)
  Sender: FDA-Public Use
  Company Number: US-MYLANLABS-2019M1042852

PATIENT
  Sex: Male
  Weight: 74.83 kg

DRUGS (1)
  1. GLATIRAMER ACETATE INJECTION [Suspect]
     Active Substance: GLATIRAMER ACETATE
     Indication: RELAPSING-REMITTING MULTIPLE SCLEROSIS
     Dosage: 40 MILLIGRAM, 3XW

REACTIONS (1)
  - Multiple sclerosis relapse [Unknown]
